FAERS Safety Report 7914881-8 (Version None)
Quarter: 2011Q4

REPORT INFORMATION
  Report Type: 
  Country: None (occurrence: None)
  Receive Date: 20111115
  Receipt Date: 20111102
  Transmission Date: 20120403
  Serious: Yes (Death, Life-Threatening, Hospitalization)
  Sender: FDA-Public Use
  Company Number: DE-ROCHE-1009427

PATIENT
  Sex: Female
  Weight: 92 kg

DRUGS (5)
  1. AVASTIN [Suspect]
     Indication: BREAST CANCER METASTATIC
     Dosage: MOSTRECENT DOSE PRIOR TO SAE 25/OCT/2011
     Route: 042
  2. CITALOPRAM [Suspect]
     Indication: DEPRESSION
     Route: 048
  3. METOCLOPRAMIDE AND METOCLOPRAMIDE HYDROCHLORIDE [Suspect]
     Indication: NAUSEA
     Route: 048
  4. RANITIDINE [Suspect]
     Indication: NAUSEA
     Route: 048
  5. PACLITAXEL [Suspect]
     Indication: BREAST CANCER METASTATIC
     Dosage: MOST RECENT DOSE PRIOR TO SAE 25/OCT/2011
     Route: 042

REACTIONS (3)
  - GASTROINTESTINAL NECROSIS [None]
  - ABDOMINAL PAIN [None]
  - INTESTINAL ISCHAEMIA [None]
